FAERS Safety Report 7249639-9 (Version None)
Quarter: 2011Q1

REPORT INFORMATION
  Report Type: 
  Country: None (occurrence: None)
  Receive Date: 20110128
  Receipt Date: 20110117
  Transmission Date: 20110831
  Serious: Yes (Hospitalization)
  Sender: FDA-Public Use
  Company Number: CA-PFIZER INC-2006145999

PATIENT
  Age: 80 Year
  Sex: Female
  Weight: 57.9 kg

DRUGS (7)
  1. SUNITINIB MALATE [Suspect]
     Indication: GASTROINTESTINAL STROMAL TUMOUR
     Dosage: 37.5 MG, 1X/DAY
     Route: 048
     Dates: start: 20051110, end: 20061122
  2. DIOVANE [Concomitant]
     Route: 048
     Dates: start: 20051110
  3. K-DUR [Concomitant]
     Route: 048
     Dates: start: 20061204
  4. ALDACTONE [Concomitant]
     Route: 048
     Dates: start: 20061128
  5. PANTOPRAZOLE [Concomitant]
     Route: 048
     Dates: start: 20060201
  6. EPREX [Concomitant]
     Route: 058
     Dates: start: 20060531
  7. LASIX [Concomitant]
     Route: 048
     Dates: start: 19950101

REACTIONS (3)
  - RHABDOMYOLYSIS [None]
  - HYPOTHYROIDISM [None]
  - PANCYTOPENIA [None]
